FAERS Safety Report 5699767-4 (Version None)
Quarter: 2008Q2

REPORT INFORMATION
  Report Type: 
  Country: None (occurrence: None)
  Receive Date: 20080408
  Receipt Date: 20080408
  Transmission Date: 20081010
  Serious: No
  Sender: FDA-Public Use
  Company Number: None

PATIENT
  Sex: Female
  Weight: 52.1637 kg

DRUGS (1)
  1. CESAMET [Suspect]
     Indication: DECREASED APPETITE
     Dates: start: 20080221, end: 20080221

REACTIONS (5)
  - ABDOMINAL PAIN UPPER [None]
  - COLD SWEAT [None]
  - FEAR [None]
  - HEART RATE INCREASED [None]
  - TREMOR [None]
